FAERS Safety Report 14659430 (Version 2)
Quarter: 2019Q2

REPORT INFORMATION
  Report Type: Spontaneous
  Country: US (occurrence: US)
  Receive Date: 20180320
  Receipt Date: 20190610
  Transmission Date: 20190711
  Serious: Yes (Hospitalization, Other)
  Sender: FDA-Public Use
  Company Number: US-MYLANLABS-2018M1016395

PATIENT
  Sex: Female

DRUGS (2)
  1. FENTANYL TRANSDERMAL SYSTEM [Suspect]
     Active Substance: FENTANYL
     Indication: PAIN
     Dosage: UNK UNK, Q3D
     Route: 062
  2. OXYCONTIN [Concomitant]
     Active Substance: OXYCODONE HYDROCHLORIDE
     Indication: PRODUCT USED FOR UNKNOWN INDICATION
     Dosage: 10 MG, Q4H

REACTIONS (19)
  - Suicidal ideation [Not Recovered/Not Resolved]
  - Yawning [Not Recovered/Not Resolved]
  - Product storage error [Unknown]
  - Fear of death [Not Recovered/Not Resolved]
  - Withdrawal syndrome [Not Recovered/Not Resolved]
  - Product adhesion issue [Recovered/Resolved]
  - Vomiting [Not Recovered/Not Resolved]
  - Aspiration [Not Recovered/Not Resolved]
  - Loss of consciousness [Unknown]
  - Feeling abnormal [Not Recovered/Not Resolved]
  - Malaise [Unknown]
  - Pain [Not Recovered/Not Resolved]
  - Wrong technique in product usage process [Unknown]
  - Hospitalisation [Unknown]
  - Muscle spasms [Recovered/Resolved with Sequelae]
  - Dysstasia [Not Recovered/Not Resolved]
  - Visual impairment [Not Recovered/Not Resolved]
  - Loss of personal independence in daily activities [Unknown]
  - Insomnia [Not Recovered/Not Resolved]
